FAERS Safety Report 8790712 (Version 1)
Quarter: 2012Q4

REPORT INFORMATION
  Report Type: Spontaneous
  Country: GB (occurrence: None)
  Receive Date: 20120907
  Receipt Date: 20120907
  Transmission Date: 20130627
  Serious: Yes (Other)
  Sender: FDA-Public Use
  Company Number: TUK2012A00235

PATIENT
  Age: 62 Year
  Sex: Female

DRUGS (1)
  1. PIOGLITAZONE HYDROCHLORIDE [Suspect]
     Indication: DIABETES
     Dosage: (15 mg, 2 in 1 d)
     Route: 048
     Dates: start: 20080926, end: 20120427

REACTIONS (1)
  - Normochromic normocytic anaemia [None]
